FAERS Safety Report 6115483-9 (Version None)
Quarter: 2009Q1

REPORT INFORMATION
  Report Type: 
  Country: None (occurrence: None)
  Receive Date: 20090313
  Receipt Date: 20090305
  Transmission Date: 20090719
  Serious: Yes (Hospitalization)
  Sender: FDA-Public Use
  Company Number: DE-ABBOTT-08P-062-0488603-01

PATIENT
  Sex: Female
  Weight: 64.3 kg

DRUGS (5)
  1. HUMIRA [Suspect]
     Indication: RHEUMATOID ARTHRITIS
     Route: 058
     Dates: start: 20030409, end: 20081024
  2. HUMIRA [Suspect]
     Route: 058
     Dates: start: 20090305
  3. BISOPROLOL [Concomitant]
     Indication: HYPERTENSION
     Route: 048
     Dates: start: 20061206
  4. CORNEREGEL [Concomitant]
     Indication: SICCA SYNDROME
     Dates: start: 20070717
  5. CORNEREGEL [Concomitant]
     Indication: PROPHYLAXIS

REACTIONS (2)
  - FOOT DEFORMITY [None]
  - IMPAIRED HEALING [None]
